FAERS Safety Report 17331984 (Version 2)
Quarter: 2020Q2

REPORT INFORMATION
  Report Type: Report from Study
  Country: US (occurrence: US)
  Receive Date: 20200128
  Receipt Date: 20200415
  Transmission Date: 20200713
  Serious: Yes (Other)
  Sender: FDA-Public Use
  Company Number: US-GLAXOSMITHKLINE-2019-TSO02286-US

PATIENT
  Age: 70 Year
  Sex: Female

DRUGS (3)
  1. NIRAPARIB [Suspect]
     Active Substance: NIRAPARIB
     Dosage: 200 MG, DAILY WITH DINNER
     Dates: start: 20191007
  2. NIRAPARIB [Suspect]
     Active Substance: NIRAPARIB
     Dosage: 200 MG, QD
  3. NIRAPARIB [Suspect]
     Active Substance: NIRAPARIB
     Indication: OVARIAN CANCER
     Dosage: 300 MG, QD 8PM WITH FOOD
     Dates: start: 20190617, end: 20190903

REACTIONS (21)
  - Blood urea increased [Unknown]
  - Dyspepsia [Unknown]
  - Blood alkaline phosphatase increased [Unknown]
  - Vaginal cancer [Unknown]
  - Tinnitus [Recovered/Resolved]
  - Fatigue [Recovered/Resolved]
  - Nausea [Recovered/Resolved]
  - Vomiting [Recovered/Resolved]
  - Dyspnoea [Recovered/Resolved]
  - Nocturia [Unknown]
  - Scar [Unknown]
  - Cough [Unknown]
  - Haemoglobin decreased [Recovered/Resolved]
  - Ear infection [Recovering/Resolving]
  - Insomnia [Recovered/Resolved]
  - Constipation [Recovered/Resolved]
  - Heart rate increased [Recovered/Resolved]
  - Carbohydrate antigen 125 increased [Recovered/Resolved]
  - Diarrhoea [Unknown]
  - Platelet count decreased [Not Recovered/Not Resolved]
  - Red blood cell count decreased [Unknown]

NARRATIVE: CASE EVENT DATE: 201909
